FAERS Safety Report 4377993-4 (Version None)
Quarter: 2004Q2

REPORT INFORMATION
  Report Type: 
  Country: None (occurrence: None)
  Receive Date: 20040609
  Receipt Date: 20040527
  Transmission Date: 20050107
  Serious: Yes (Hospitalization, Other)
  Sender: FDA-Public Use
  Company Number: CIP04001126

PATIENT
  Age: 70 Year
  Sex: Female

DRUGS (10)
  1. BENET          (RISEDRONATE SODIUM) [Suspect]
     Indication: COMPRESSION FRACTURE
     Dosage: 2.5 MG DAILY, ORAL; 2.5 MG DAILY, ORAL
     Route: 048
     Dates: start: 20040317, end: 20040318
  2. BENET          (RISEDRONATE SODIUM) [Suspect]
     Indication: COMPRESSION FRACTURE
     Dosage: 2.5 MG DAILY, ORAL; 2.5 MG DAILY, ORAL
     Route: 048
     Dates: start: 20040326, end: 20040330
  3. PREDNISOLONE [Concomitant]
  4. METHYCOBAL (MECOBALAMIN) [Concomitant]
  5. MUCOSTA (REBAMIPIDE) [Concomitant]
  6. CYTOTEC [Concomitant]
  7. RHEUMATREX [Concomitant]
  8. ZOLPIDEM TARTRATE [Concomitant]
  9. MOBIC [Concomitant]
  10. VOLTAREN (DICLOFENAC POTASSIUM) [Concomitant]

REACTIONS (6)
  - ANAEMIA [None]
  - BLOOD URINE [None]
  - CHROMATURIA [None]
  - DIVERTICULUM INTESTINAL HAEMORRHAGIC [None]
  - GASTRITIS [None]
  - URINARY INCONTINENCE [None]
